FAERS Safety Report 9421442 (Version 1)
Quarter: 2013Q3

REPORT INFORMATION
  Report Type: Spontaneous
  Country: TR (occurrence: TR)
  Receive Date: 20130726
  Receipt Date: 20130726
  Transmission Date: 20140515
  Serious: Yes (Hospitalization, Other)
  Sender: FDA-Public Use
  Company Number: TR-PAR PHARMACEUTICAL, INC-2013SCPR006046

PATIENT
  Sex: 0

DRUGS (1)
  1. METRONIDAZOLE [Suspect]
     Indication: COLITIS ULCERATIVE
     Dosage: 1500 MG, / DAY
     Route: 065

REACTIONS (4)
  - Toxicity to various agents [Unknown]
  - White matter lesion [Unknown]
  - Necrosis [Unknown]
  - Cytotoxic oedema [Unknown]
